FAERS Safety Report 6709462-8 (Version None)
Quarter: 2010Q2

REPORT INFORMATION
  Report Type: 
  Country: None (occurrence: None)
  Receive Date: 20100503
  Receipt Date: 20100503
  Transmission Date: 20101027
  Serious: Yes (Other)
  Sender: FDA-Public Use
  Company Number: None

PATIENT
  Age: 66 Year
  Sex: Male
  Weight: 133.8111 kg

DRUGS (1)
  1. REMECAID [Suspect]
     Indication: RHEUMATOID ARTHRITIS
     Dosage: 10 VIALS EVERY 6 WEEKS IV DRIP
     Route: 042

REACTIONS (5)
  - MALAISE [None]
  - OEDEMA PERIPHERAL [None]
  - PARAESTHESIA [None]
  - URINARY TRACT INFECTION [None]
  - WHITE BLOOD CELL COUNT INCREASED [None]
